FAERS Safety Report 5583182-8 (Version None)
Quarter: 2008Q1

REPORT INFORMATION
  Report Type: 
  Country: None (occurrence: None)
  Receive Date: 20080103
  Receipt Date: 20080103
  Transmission Date: 20080703
  Serious: Yes (Hospitalization)
  Sender: FDA-Public Use
  Company Number: None

PATIENT
  Age: 51 Year
  Sex: Male

DRUGS (1)
  1. ASPIRIN [Suspect]
     Dosage: 325-650MG DAILY PO
     Route: 048

REACTIONS (4)
  - ALCOHOL USE [None]
  - ANAEMIA [None]
  - DUODENAL ULCER HAEMORRHAGE [None]
  - ILL-DEFINED DISORDER [None]
